FAERS Safety Report 6311030-7 (Version None)
Quarter: 2009Q3

REPORT INFORMATION
  Report Type: 
  Country: None (occurrence: None)
  Receive Date: 20090817
  Receipt Date: 20090805
  Transmission Date: 20100115
  Serious: Yes (Hospitalization)
  Sender: FDA-Public Use
  Company Number: DK-JNJFOC-20090801214

PATIENT
  Sex: Female

DRUGS (7)
  1. REMICADE [Suspect]
     Route: 042
  2. REMICADE [Suspect]
     Route: 042
  3. REMICADE [Suspect]
     Indication: ANKYLOSING SPONDYLITIS
     Route: 042
  4. ERYTHROMYCIN [Suspect]
     Indication: DRUG USE FOR UNKNOWN INDICATION
  5. TETRACYCLINE [Suspect]
     Indication: DRUG USE FOR UNKNOWN INDICATION
  6. SURLID [Suspect]
     Indication: DRUG USE FOR UNKNOWN INDICATION
  7. AVELOX [Suspect]
     Indication: DRUG USE FOR UNKNOWN INDICATION

REACTIONS (14)
  - ABDOMINAL PAIN UPPER [None]
  - BACK PAIN [None]
  - BLADDER OBSTRUCTION [None]
  - CHEST PAIN [None]
  - CONSTIPATION [None]
  - DIPLOPIA [None]
  - DYSPNOEA [None]
  - EYE PAIN [None]
  - HEADACHE [None]
  - HEART RATE IRREGULAR [None]
  - HYPERSENSITIVITY [None]
  - INFECTION [None]
  - TYPE IV HYPERSENSITIVITY REACTION [None]
  - VISION BLURRED [None]
